FAERS Safety Report 21028140 (Version 1)
Quarter: 2022Q2

REPORT INFORMATION
  Report Type: Spontaneous
  Country: US (occurrence: None)
  Receive Date: 20220630
  Receipt Date: 20220630
  Transmission Date: 20220721
  Serious: No
  Sender: FDA-Public Use
  Company Number: None

PATIENT
  Sex: Female

DRUGS (1)
  1. KESIMPTA [Suspect]
     Active Substance: OFATUMUMAB
     Indication: Multiple sclerosis
     Dosage: OTHER FREQUENCY : WK 0, 1, 2, 4, MON;?
     Route: 058
     Dates: start: 20220608

REACTIONS (9)
  - Constipation [None]
  - Irritability [None]
  - Agitation [None]
  - Needle issue [None]
  - Device malfunction [None]
  - Injection site haemorrhage [None]
  - Incorrect dose administered by device [None]
  - Fatigue [None]
  - Pain [None]
